FAERS Safety Report 22280949 (Version 1)
Quarter: 2023Q2

REPORT INFORMATION
  Report Type: Spontaneous
  Country: US (occurrence: US)
  Receive Date: 20230503
  Receipt Date: 20230503
  Transmission Date: 20230721
  Serious: Yes (Hospitalization)
  Sender: FDA-Public Use
  Company Number: US-STRIDES ARCOLAB LIMITED-2023SP006305

PATIENT
  Age: 21 Year
  Sex: Male

DRUGS (8)
  1. ATOMOXETINE [Interacting]
     Active Substance: ATOMOXETINE
     Indication: Major depression
     Dosage: 40 MILLIGRAM, PER DAY
     Route: 065
  2. ATOMOXETINE [Interacting]
     Active Substance: ATOMOXETINE
     Indication: Attention deficit hyperactivity disorder
     Dosage: 60 MILLIGRAM, PER DAY
     Route: 065
  3. BUPROPION [Interacting]
     Active Substance: BUPROPION
     Indication: Major depression
     Dosage: 150 MILLIGRAM, PER DAY
     Route: 065
  4. BUPROPION [Interacting]
     Active Substance: BUPROPION
     Indication: Attention deficit hyperactivity disorder
     Dosage: 300 MILLIGRAM, PER DAY
     Route: 065
  5. QUETIAPINE [Suspect]
     Active Substance: QUETIAPINE
     Indication: Insomnia
     Dosage: 100 MILLIGRAM, AT BED TIME (AT NIGHT)
     Route: 065
  6. QUETIAPINE [Suspect]
     Active Substance: QUETIAPINE
     Dosage: 400 MILLIGRAM, AT BED TIME
     Route: 065
  7. QUETIAPINE [Suspect]
     Active Substance: QUETIAPINE
     Dosage: 200 MILLIGRAM, AT BED TIME
     Route: 065
  8. ALPRAZOLAM [Concomitant]
     Active Substance: ALPRAZOLAM
     Indication: Anxiety disorder
     Dosage: 0.25 MILLIGRAM, UNKNOWN
     Route: 065

REACTIONS (27)
  - Drug interaction [Unknown]
  - Confusional state [Recovered/Resolved]
  - Disorientation [Recovered/Resolved]
  - Distractibility [Unknown]
  - Disturbance in attention [Recovered/Resolved]
  - Pressure of speech [Unknown]
  - Seizure [Unknown]
  - Manic symptom [Unknown]
  - Psychotic disorder [Unknown]
  - Tongue biting [Recovered/Resolved]
  - Aggression [Recovered/Resolved]
  - Psychomotor hyperactivity [Unknown]
  - Hallucination, visual [Unknown]
  - Delusional perception [Recovered/Resolved]
  - Drooling [Recovered/Resolved]
  - Somnolence [Recovered/Resolved]
  - Egocentrism [Recovered/Resolved]
  - Tremor [Recovered/Resolved]
  - Tachycardia [Recovered/Resolved]
  - Agitation [Unknown]
  - Restlessness [Unknown]
  - Flight of ideas [Unknown]
  - Anxiety [Unknown]
  - Tangentiality [Unknown]
  - Hallucination, auditory [Unknown]
  - Toxicity to various agents [Unknown]
  - Off label use [Unknown]
